FAERS Safety Report 7965778-9 (Version None)
Quarter: 2011Q4

REPORT INFORMATION
  Report Type: 
  Country: None (occurrence: None)
  Receive Date: 20111208
  Receipt Date: 20111129
  Transmission Date: 20120403
  Serious: Yes (Hospitalization, Other)
  Sender: FDA-Public Use
  Company Number: US-ELI_LILLY_AND_COMPANY-US201112000056

PATIENT
  Sex: Female

DRUGS (2)
  1. HUMULIN 70/30 [Suspect]
     Indication: DIABETES MELLITUS
     Dosage: UNK, UNKNOWN
     Dates: start: 19920101
  2. HUMULIN 70/30 [Suspect]
     Dosage: UNK, UNKNOWN

REACTIONS (5)
  - CATARACT [None]
  - HAEMORRHAGE [None]
  - MEMORY IMPAIRMENT [None]
  - COLON CANCER [None]
  - BREAST CANCER [None]
